FAERS Safety Report 6907014-8 (Version None)
Quarter: 2010Q3

REPORT INFORMATION
  Report Type: 
  Country: None (occurrence: None)
  Receive Date: 20100804
  Receipt Date: 20080502
  Transmission Date: 20110219
  Serious: Yes (Other)
  Sender: FDA-Public Use
  Company Number: US-PFIZER INC-2008038793

PATIENT
  Sex: Female

DRUGS (10)
  1. NARDIL [Suspect]
     Dosage: 2 DOSE FORM,IN THE MORNING
     Dates: end: 20080101
  2. NARDIL [Suspect]
     Dosage: 1 DOSE FORM
     Dates: start: 20080101
  3. CALTRATE [Concomitant]
  4. THERAGRAN-M [Concomitant]
  5. PRILOSEC [Concomitant]
  6. GLUCOSAMINE [Concomitant]
  7. AMLODIPINE [Concomitant]
  8. LEVOTHYROXINE [Concomitant]
  9. LUMIGAN [Concomitant]
  10. IBANDRONIC ACID [Concomitant]

REACTIONS (2)
  - BLOOD PRESSURE INCREASED [None]
  - HEART RATE INCREASED [None]
